FAERS Safety Report 23789941 (Version 3)
Quarter: 2024Q2

REPORT INFORMATION
  Report Type: Spontaneous
  Country: ES (occurrence: ES)
  Receive Date: 20240426
  Receipt Date: 20240508
  Transmission Date: 20240716
  Serious: Yes (Death, Other)
  Sender: FDA-Public Use
  Company Number: ES-009507513-2404ESP011002

PATIENT
  Age: 73 Year
  Sex: Male

DRUGS (1)
  1. PEMBROLIZUMAB [Suspect]
     Active Substance: PEMBROLIZUMAB
     Indication: Colorectal cancer metastatic
     Dosage: UNK

REACTIONS (6)
  - Malignant neoplasm progression [Fatal]
  - Abdominal sepsis [Unknown]
  - Pulmonary sepsis [Unknown]
  - Respiratory failure [Unknown]
  - Cardiac failure [Unknown]
  - Drug ineffective [Unknown]
